FAERS Safety Report 9098614 (Version 1)
Quarter: 2013Q1

REPORT INFORMATION
  Report Type: Spontaneous
  Country: US (occurrence: US)
  Receive Date: 20130213
  Receipt Date: 20130213
  Transmission Date: 20140127
  Serious: No
  Sender: FDA-Public Use
  Company Number: US-009507513-1302USA004451

PATIENT
  Sex: Male

DRUGS (2)
  1. MIRALAX [Suspect]
     Indication: PRODUCT USED FOR UNKNOWN INDICATION
     Dosage: UNK, UNKNOWN
  2. MIRALAX [Suspect]
     Indication: MEDICAL OBSERVATION

REACTIONS (2)
  - Abdominal pain [Not Recovered/Not Resolved]
  - Drug ineffective [Unknown]
